FAERS Safety Report 19861124 (Version 1)
Quarter: 2021Q3

REPORT INFORMATION
  Report Type: Spontaneous
  Country: DE (occurrence: DE)
  Receive Date: 20210920
  Receipt Date: 20210920
  Transmission Date: 20211014
  Serious: Yes (Hospitalization)
  Sender: FDA-Public Use
  Company Number: DE-PFIZER INC-202101156058

PATIENT
  Age: 82 Year
  Sex: Male
  Weight: 98.1 kg

DRUGS (13)
  1. CLOPIDOGREL [Concomitant]
     Active Substance: CLOPIDOGREL BISULFATE
     Dosage: 75 MG, 1X/DAY (1?0?0?0)
     Route: 048
  2. TRAMADOL. [Concomitant]
     Active Substance: TRAMADOL
     Dosage: 100 MG, AS NEEDED
     Route: 048
  3. BISOPROLOL [Concomitant]
     Active Substance: BISOPROLOL
     Dosage: 2.5 MG 2X/DAY (1?0?1?0)
     Route: 048
  4. TORASEMID [Suspect]
     Active Substance: TORSEMIDE
     Dosage: 50 MG, 4X/DAY (2?2?0?0)
     Route: 048
  5. XIPAMID [Suspect]
     Active Substance: XIPAMIDE
     Dosage: 20 MG (0.5?0?0?0)
     Route: 048
  6. PREGABALIN. [Concomitant]
     Active Substance: PREGABALIN
     Dosage: 75 MG, 1X/DAY (0?0?1?0)
     Route: 048
  7. MACROGOL ABZ BALANCE [Concomitant]
     Active Substance: POLYETHYLENE GLYCOL 3350\POTASSIUM CHLORIDE\SODIUM BICARBONATE\SODIUM CHLORIDE
     Dosage: UNK UNK, 1X/DAY (1?0?0?0)
     Route: 048
  8. DEKRISTOL [Concomitant]
     Active Substance: CHOLECALCIFEROL
     Dosage: 20000 IU (1?0?0?0)
     Route: 048
  9. TREVILOR RETARD [Suspect]
     Active Substance: VENLAFAXINE HYDROCHLORIDE
     Dosage: 75 MG, 1X/DAY (1?0?0?0)
     Route: 048
  10. ACETYLSALICYLIC ACID [Concomitant]
     Active Substance: ASPIRIN
     Dosage: 100 MG, 1X/DAY (0?1?0?0)
     Route: 048
  11. PANTOPRAZOLE [Concomitant]
     Active Substance: PANTOPRAZOLE
     Dosage: 40 MG, 1X/DAY (1?0?0?0)
     Route: 048
  12. TADALAFIL 1 A PHARMA [Suspect]
     Active Substance: TADALAFIL
     Dosage: 5 MG, 1X/DAY (1?0?0?0)
     Route: 048
  13. MAGNESIUM [Concomitant]
     Active Substance: MAGNESIUM
     Dosage: 243 MG, 1X/DAY (1?0?0?0)
     Route: 048

REACTIONS (5)
  - Asthenia [Unknown]
  - Nausea [Unknown]
  - Dyspnoea at rest [Unknown]
  - Dysuria [Unknown]
  - Nocturia [Unknown]
